FAERS Safety Report 4357524-5 (Version None)
Quarter: 2004Q2

REPORT INFORMATION
  Report Type: 
  Country: None (occurrence: None)
  Receive Date: 20040511
  Receipt Date: 20040511
  Transmission Date: 20050107
  Serious: Yes (Hospitalization)
  Sender: FDA-Public Use
  Company Number: None

PATIENT
  Age: 74 Year
  Sex: Female
  Weight: 82.1 kg

DRUGS (10)
  1. NORVASC [Suspect]
     Indication: HYPERTENSION
     Dosage: 5 MG PO QD
     Route: 048
  2. ATENOLOL [Suspect]
     Indication: HYPERTENSION
     Dosage: 50 PO QD
     Route: 048
  3. MAXZIDE-25 [Suspect]
     Indication: HYPERTENSION
     Dosage: ONE QD
  4. CALCUIM [Concomitant]
  5. ATIVAN [Concomitant]
  6. TAMOXIFEN CITRATE [Concomitant]
  7. FLONASE [Concomitant]
  8. ACCUPRIL [Concomitant]
  9. PRILOSEC [Concomitant]
  10. ASPIRIN [Concomitant]

REACTIONS (6)
  - BLOOD PRESSURE DECREASED [None]
  - FEELING ABNORMAL [None]
  - HEART RATE DECREASED [None]
  - MARKEDLY REDUCED DIETARY INTAKE [None]
  - SYNCOPE [None]
  - VOMITING [None]
